FAERS Safety Report 4927595-3 (Version None)
Quarter: 2006Q1

REPORT INFORMATION
  Report Type: 
  Country: None (occurrence: None)
  Receive Date: 20060228
  Receipt Date: 20051019
  Transmission Date: 20060701
  Serious: Yes (Hospitalization)
  Sender: FDA-Public Use
  Company Number: US-MERCK-0510USA08261

PATIENT
  Age: 65 Year
  Sex: Female
  Weight: 69 kg

DRUGS (20)
  1. VIOXX [Suspect]
     Indication: PLANTAR FASCIITIS
     Route: 048
     Dates: start: 20000907, end: 20040623
  2. VIOXX [Suspect]
     Indication: OSTEOARTHRITIS
     Route: 048
     Dates: start: 20000907, end: 20040623
  3. CLARITIN [Concomitant]
     Route: 065
  4. LEVOXYL [Concomitant]
     Route: 065
  5. FOLIC ACID [Concomitant]
     Route: 065
  6. ASPIRIN [Concomitant]
     Indication: PAIN
     Route: 065
     Dates: start: 19920101
  7. ACCOLATE [Concomitant]
     Route: 065
     Dates: start: 19980617, end: 20010220
  8. TYLENOL (CAPLET) [Concomitant]
     Indication: PAIN
     Route: 065
  9. OXYCODONE [Concomitant]
     Route: 065
     Dates: start: 20010906, end: 20011213
  10. PROPOXYPHENE HYDROCHLORIDE [Concomitant]
     Indication: PAIN
     Route: 065
     Dates: start: 20011001, end: 20011015
  11. EVISTA [Concomitant]
     Indication: OSTEOPOROSIS
     Route: 065
  12. HYZAAR [Concomitant]
     Indication: HYPERTENSION
     Route: 065
     Dates: start: 20011211, end: 20050601
  13. PREVACID [Concomitant]
     Indication: GASTROOESOPHAGEAL REFLUX DISEASE
     Route: 065
  14. POTASSIUM CHLORIDE [Concomitant]
     Route: 065
  15. VAGIFEM [Concomitant]
     Indication: VULVOVAGINAL DRYNESS
     Route: 065
  16. PROZAC [Concomitant]
     Route: 065
  17. HYDROCODONE BITARTRATE [Concomitant]
     Indication: PAIN
     Route: 065
  18. VALTREX [Concomitant]
     Indication: HERPES SIMPLEX
     Route: 065
  19. SYNTHROID [Concomitant]
     Indication: HYPOTHYROIDISM
     Route: 065
     Dates: start: 19860101
  20. PREMARIN [Concomitant]
     Indication: OESTROGEN REPLACEMENT THERAPY
     Route: 065
     Dates: start: 19980601

REACTIONS (14)
  - ANXIETY DISORDER [None]
  - BLOOD CHOLESTEROL INCREASED [None]
  - BREAST NEOPLASM [None]
  - CEREBROVASCULAR DISORDER [None]
  - COORDINATION ABNORMAL [None]
  - GASTROOESOPHAGEAL REFLUX DISEASE [None]
  - HYPERLIPIDAEMIA [None]
  - INFECTION [None]
  - INJURY [None]
  - MAJOR DEPRESSION [None]
  - NEURITIS [None]
  - SLEEP DISORDER [None]
  - TRANSIENT ISCHAEMIC ATTACK [None]
  - VERTIGO [None]
